FAERS Safety Report 4568103-9 (Version None)
Quarter: 2005Q1

REPORT INFORMATION
  Report Type: 
  Country: None (occurrence: None)
  Receive Date: 20050131
  Receipt Date: 20050118
  Transmission Date: 20050727
  Serious: Yes (Other)
  Sender: FDA-Public Use
  Company Number: 2005013383

PATIENT
  Age: 76 Year
  Sex: Female

DRUGS (2)
  1. BEXTRA [Suspect]
     Indication: INFLAMMATION
     Dosage: 40 MG (20 MG, 2 IN 1 D), ORAL
     Route: 048
     Dates: start: 20050111, end: 20050112
  2. BECLOMETHASONE DIPROPIONATE [Concomitant]

REACTIONS (5)
  - AMNESIA [None]
  - BLINDNESS [None]
  - CONFUSIONAL STATE [None]
  - HYPERTENSIVE CRISIS [None]
  - VOMITING [None]
